FAERS Safety Report 6734834-5 (Version None)
Quarter: 2010Q2

REPORT INFORMATION
  Report Type: 
  Country: None (occurrence: None)
  Receive Date: 20100521
  Receipt Date: 20100504
  Transmission Date: 20101027
  Serious: No
  Sender: FDA-Public Use
  Company Number: US-BIOGENIDEC-2010BI015247

PATIENT
  Age: 34 Year
  Sex: Male
  Weight: 96 kg

DRUGS (4)
  1. TYSABRI [Suspect]
     Indication: MULTIPLE SCLEROSIS
     Route: 042
     Dates: start: 20080811
  2. VITAMINS [Concomitant]
     Indication: MULTIPLE SCLEROSIS
  3. VITAMINS [Concomitant]
     Indication: ANXIETY
  4. WELLBUTRIN [Concomitant]
     Route: 048

REACTIONS (4)
  - ANXIETY [None]
  - MULTIPLE SCLEROSIS [None]
  - SINUSITIS [None]
  - VIRAL INFECTION [None]
